FAERS Safety Report 12807255 (Version 1)
Quarter: 2016Q4

REPORT INFORMATION
  Report Type: Spontaneous
  Country: DE (occurrence: DE)
  Receive Date: 20161004
  Receipt Date: 20161004
  Transmission Date: 20170207
  Serious: Yes (Hospitalization, Other)
  Sender: FDA-Public Use
  Company Number: DE-INCYTE CORPORATION-2016IN006138

PATIENT
  Age: 77 Year
  Sex: Male

DRUGS (4)
  1. HYDROXYUREA MEDAC [Suspect]
     Active Substance: HYDROXYUREA
     Indication: MYELOFIBROSIS
  2. JAKAVI [Suspect]
     Active Substance: RUXOLITINIB
     Indication: MYELOFIBROSIS
     Dosage: 5 MG, UNK
     Route: 065
     Dates: start: 2016
  3. HYDROXYUREA MEDAC [Suspect]
     Active Substance: HYDROXYUREA
     Indication: POLYCYTHAEMIA VERA
     Route: 065
  4. JAKAVI [Suspect]
     Active Substance: RUXOLITINIB
     Indication: POLYCYTHAEMIA VERA
     Dosage: 15 MG, UNK
     Route: 065
     Dates: start: 20121112

REACTIONS (3)
  - Anaemia [Unknown]
  - Restless legs syndrome [Unknown]
  - Arrhythmia [Unknown]

NARRATIVE: CASE EVENT DATE: 201301
